FAERS Safety Report 19876937 (Version 1)
Quarter: 2021Q3

REPORT INFORMATION
  Report Type: Spontaneous
  Country: None (occurrence: US)
  Receive Date: 20210923
  Receipt Date: 20210923
  Transmission Date: 20211014
  Serious: Yes (Hospitalization)
  Sender: FDA-Public Use
  Company Number: US-OXFORD PHARMACEUTICALS, LLC-2118728

PATIENT
  Age: 60 Year
  Sex: Male

DRUGS (3)
  1. MORPHINE SULFATE. [Suspect]
     Active Substance: MORPHINE SULFATE
  2. BACLOFEN. [Suspect]
     Active Substance: BACLOFEN
     Indication: NECK PAIN
  3. BUPIVACAINE. [Suspect]
     Active Substance: BUPIVACAINE

REACTIONS (5)
  - Respiratory failure [Recovering/Resolving]
  - Mental status changes postoperative [Recovering/Resolving]
  - Overdose [Recovering/Resolving]
  - Hypotension [Recovering/Resolving]
  - Somnolence [Recovering/Resolving]
